FAERS Safety Report 7491535-6 (Version None)
Quarter: 2011Q2

REPORT INFORMATION
  Report Type: 
  Country: None (occurrence: None)
  Receive Date: 20110519
  Receipt Date: 20110506
  Transmission Date: 20111010
  Serious: Yes (Hospitalization)
  Sender: FDA-Public Use
  Company Number: FR-ELI_LILLY_AND_COMPANY-FR201102005503

PATIENT
  Age: 28 Year
  Sex: Female

DRUGS (3)
  1. CYMBALTA [Suspect]
     Indication: DEPRESSION
     Dosage: 60 MG, UNK
     Route: 048
     Dates: start: 20080101, end: 20110114
  2. LYSANXIA [Concomitant]
     Dosage: 10 MG, 4/D
     Route: 048
  3. PROPRANOLOL [Concomitant]
     Indication: HEADACHE
     Dosage: 40 MG, DAILY (1/D)
     Route: 048
     Dates: start: 20080101, end: 20110101

REACTIONS (2)
  - BIPOLAR I DISORDER [None]
  - DRUG EXPOSURE DURING PREGNANCY [None]
